FAERS Safety Report 8309527-3 (Version None)
Quarter: 2012Q2

REPORT INFORMATION
  Report Type: 
  Country: None (occurrence: None)
  Receive Date: 20120425
  Receipt Date: 20120420
  Transmission Date: 20120825
  Serious: Yes (Other)
  Sender: FDA-Public Use
  Company Number: US-PFIZER INC-2012098530

PATIENT
  Sex: Female
  Weight: 70.748 kg

DRUGS (5)
  1. MULTI-VITAMINS [Suspect]
     Indication: VITAMIN SUPPLEMENTATION
     Dosage: UNK, 1X/DAY
     Route: 048
     Dates: end: 20120419
  2. PRILOSEC [Concomitant]
     Dosage: UNK
  3. LIPITOR [Suspect]
     Indication: BLOOD CHOLESTEROL INCREASED
     Dosage: UNK
  4. LEVOTHYROXINE [Concomitant]
     Indication: HYPOTHYROIDISM
     Dosage: UNK
  5. CARVEDILOL [Concomitant]
     Indication: HYPERTENSION
     Dosage: UNK

REACTIONS (6)
  - RENAL DISORDER [None]
  - MALAISE [None]
  - FATIGUE [None]
  - VITAMIN B12 INCREASED [None]
  - URINARY TRACT INFECTION [None]
  - ASTHENIA [None]
